FAERS Safety Report 5349649-2 (Version None)
Quarter: 2007Q2

REPORT INFORMATION
  Report Type: 
  Country: None (occurrence: None)
  Receive Date: 20070607
  Receipt Date: 20070606
  Transmission Date: 20071010
  Serious: Yes (Death, Hospitalization)
  Sender: FDA-Public Use
  Company Number: US-BRISTOL-MYERS SQUIBB COMPANY-13786520

PATIENT
  Age: 89 Year
  Sex: Male
  Weight: 77 kg

DRUGS (3)
  1. GLUCOPHAGE [Suspect]
     Indication: DIABETES MELLITUS
     Route: 048
  2. METOPROLOL SUCCINATE [Concomitant]
  3. ARICEPT [Concomitant]

REACTIONS (2)
  - ACCIDENT AT HOME [None]
  - DEATH [None]
